FAERS Safety Report 12427397 (Version 1)
Quarter: 2016Q2

REPORT INFORMATION
  Report Type: Spontaneous
  Country: ES (occurrence: ES)
  Receive Date: 20160602
  Receipt Date: 20160602
  Transmission Date: 20160815
  Serious: Yes (Life-Threatening, Hospitalization, Other)
  Sender: FDA-Public Use
  Company Number: ES-UCBSA-2016019750

PATIENT
  Age: 58 Year
  Sex: Female

DRUGS (8)
  1. ZAMENE [Concomitant]
     Active Substance: DEFLAZACORT
     Indication: RHEUMATOID ARTHRITIS
     Dosage: 6 MG, ONCE DAILY (QD) (6 MG/24H)
     Route: 048
     Dates: end: 20160417
  2. HUMIRA [Suspect]
     Active Substance: ADALIMUMAB
     Indication: RHEUMATOID ARTHRITIS
     Dosage: 40 MG, EV 2 WEEKS(QOW) (40 MG EVERY 14 DAYS)
     Route: 058
     Dates: start: 20151125, end: 20160316
  3. CIMZIA [Suspect]
     Active Substance: CERTOLIZUMAB PEGOL
     Indication: RHEUMATOID ARTHRITIS
     Dosage: 200 MG, EV 2 WEEKS(QOW) (200 MG EVERY 14 DAYS)
     Route: 058
     Dates: start: 20160316, end: 20160417
  4. LEFLUNOMIDE. [Concomitant]
     Active Substance: LEFLUNOMIDE
     Indication: RHEUMATOID ARTHRITIS
     Dosage: 20 MG/24H
     Route: 048
     Dates: end: 20160417
  5. BONESIL D FLAS [Concomitant]
     Indication: PRODUCT USED FOR UNKNOWN INDICATION
     Dosage: 1500 MG, ONCE DAILY (QD) (1COMP/24H)
     Route: 048
     Dates: end: 20160417
  6. ESPIDIFEN [Concomitant]
     Active Substance: IBUPROFEN
     Indication: RHEUMATOID ARTHRITIS
     Dosage: 600 MG, ONCE DAILY (QD) (600 MG/24H)
     Route: 048
  7. OMEPRAZOLE. [Concomitant]
     Active Substance: OMEPRAZOLE
     Indication: PROPHYLAXIS AGAINST GASTROINTESTINAL ULCER
     Dosage: 20 MG, ONCE DAILY (QD) (20 MG/24H)
     Route: 048
  8. ACFOL [Concomitant]
     Active Substance: FOLIC ACID
     Indication: PRODUCT USED FOR UNKNOWN INDICATION
     Dosage: 5 MG, ONCE DAILY (QD) (5 MG/24H)
     Route: 048
     Dates: end: 20160417

REACTIONS (3)
  - Acute respiratory failure [Not Recovered/Not Resolved]
  - Septic shock [Not Recovered/Not Resolved]
  - Pneumonia pneumococcal [Not Recovered/Not Resolved]

NARRATIVE: CASE EVENT DATE: 20160416
